FAERS Safety Report 15560058 (Version 1)
Quarter: 2018Q4

REPORT INFORMATION
  Report Type: Spontaneous
  Country: US (occurrence: US)
  Receive Date: 20181028
  Receipt Date: 20181028
  Transmission Date: 20190205
  Serious: Yes (Other)
  Sender: FDA-Public Use
  Company Number: None

PATIENT
  Age: 4 Year
  Sex: Male
  Weight: 20.25 kg

DRUGS (1)
  1. MIRALAX [Suspect]
     Active Substance: POLYETHYLENE GLYCOL 3350
     Indication: CONSTIPATION
     Dosage: ?          QUANTITY:1 1-4 CAPFULS;?
     Route: 048

REACTIONS (6)
  - Anxiety [None]
  - Educational problem [None]
  - Mood swings [None]
  - Aggression [None]
  - Psychomotor hyperactivity [None]
  - Paranoia [None]

NARRATIVE: CASE EVENT DATE: 20160601
